FAERS Safety Report 11230526 (Version 1)
Quarter: 2015Q2

REPORT INFORMATION
  Report Type: Spontaneous
  Country: None (occurrence: None)
  Receive Date: 20150630
  Receipt Date: 20150630
  Transmission Date: 20150821
  Serious: No
  Sender: FDA-Public Use
  Company Number: None

PATIENT
  Age: 31 Year
  Sex: Female
  Weight: 83.46 kg

DRUGS (2)
  1. MIRENA [Suspect]
     Active Substance: LEVONORGESTREL
     Indication: CONTRACEPTION
     Route: 015
     Dates: start: 20150225, end: 20150325
  2. MICRONOR [Concomitant]
     Active Substance: NORETHINDRONE

REACTIONS (4)
  - Pain in extremity [None]
  - Arthralgia [None]
  - Joint stiffness [None]
  - Myalgia [None]

NARRATIVE: CASE EVENT DATE: 20150225
